FAERS Safety Report 5704846-9 (Version None)
Quarter: 2008Q2

REPORT INFORMATION
  Report Type: 
  Country: None (occurrence: None)
  Receive Date: 20080414
  Receipt Date: 20080404
  Transmission Date: 20081010
  Serious: Yes (Hospitalization)
  Sender: FDA-Public Use
  Company Number: CA-ELI_LILLY_AND_COMPANY-CA200804001275

PATIENT
  Age: 81 Year
  Sex: Female

DRUGS (8)
  1. FORTEO [Suspect]
     Indication: OSTEOPOROSIS
     Dosage: 20 UG, DAILY (1/D)
     Route: 058
     Dates: start: 20061012, end: 20080331
  2. CALCIUM [Concomitant]
  3. VITAMIN D [Concomitant]
  4. ATIVAN [Concomitant]
  5. TYLENOL (CAPLET) [Concomitant]
  6. PLENDIL [Concomitant]
     Dosage: UNK, 2/D
  7. ASPIRIN [Concomitant]
     Dosage: 85 MG, UNK
  8. LOSEC I.V. [Concomitant]

REACTIONS (3)
  - BLOOD PRESSURE INCREASED [None]
  - NAUSEA [None]
  - PYREXIA [None]
